FAERS Safety Report 4926175-3 (Version None)
Quarter: 2006Q1

REPORT INFORMATION
  Report Type: 
  Country: None (occurrence: None)
  Receive Date: 20060228
  Receipt Date: 20060220
  Transmission Date: 20060701
  Serious: Yes (Life-Threatening)
  Sender: FDA-Public Use
  Company Number: NO-JNJFOC-20040603424

PATIENT
  Sex: Female

DRUGS (9)
  1. REMICADE [Suspect]
     Dosage: 5 DOSES
     Route: 042
  2. IBUX [Concomitant]
     Indication: ARTHRITIS
     Route: 048
  3. FRAGMIN [Concomitant]
     Route: 058
  4. ACETAMINOPHEN [Concomitant]
     Indication: PAIN
     Route: 048
  5. FERRO-RETARD [Concomitant]
     Route: 048
  6. OXYCONTIN [Concomitant]
     Route: 048
  7. FOLIC ACID [Concomitant]
     Route: 048
  8. OMEGA-3 [Concomitant]
     Route: 048
  9. VIOXX [Concomitant]
     Indication: ARTHRITIS
     Route: 048
     Dates: start: 20040513, end: 20040520

REACTIONS (4)
  - ANXIETY [None]
  - DYSPNOEA [None]
  - HYPOTENSION [None]
  - TACHYCARDIA [None]
